FAERS Safety Report 20758988 (Version 1)
Quarter: 2022Q2

REPORT INFORMATION
  Report Type: Spontaneous
  Country: US (occurrence: US)
  Receive Date: 20220427
  Receipt Date: 20220427
  Transmission Date: 20220720
  Serious: No
  Sender: FDA-Public Use
  Company Number: US-PFIZER INC-202101741980

PATIENT
  Age: 57 Year
  Sex: Female

DRUGS (4)
  1. XELJANZ [Suspect]
     Active Substance: TOFACITINIB CITRATE
     Dosage: 5 MG, 2X/DAY
     Route: 048
     Dates: start: 20210701
  2. FLONASE [Concomitant]
     Active Substance: FLUTICASONE PROPIONATE
     Dosage: UNK
  3. PSEUDOEPHEDRINE [Concomitant]
     Active Substance: PSEUDOEPHEDRINE
     Dosage: UNK
  4. FIBER [Concomitant]
     Active Substance: PSYLLIUM HUSK
     Dosage: UNK

REACTIONS (6)
  - Upper respiratory tract infection [Unknown]
  - Blood cholesterol increased [Unknown]
  - Cough [Unknown]
  - Oropharyngeal pain [Unknown]
  - Rhinorrhoea [Unknown]
  - Nasal congestion [Unknown]

NARRATIVE: CASE EVENT DATE: 20210101
